FAERS Safety Report 7755124-8 (Version None)
Quarter: 2011Q3

REPORT INFORMATION
  Report Type: 
  Country: None (occurrence: None)
  Receive Date: 20110913
  Receipt Date: 20110907
  Transmission Date: 20111222
  Serious: Yes (Hospitalization, Other)
  Sender: FDA-Public Use
  Company Number: DKLU1072227

PATIENT
  Age: 46 Year
  Sex: Female

DRUGS (2)
  1. SABRIL [Suspect]
     Indication: EPILEPSY
     Dosage: 1000 MG MILLIGRAM(S), 2 IN 1 D, ORAL 1500 MG MILLIGRAM(S), 3 IN 1 D, ORAL
     Route: 048
     Dates: start: 20101216, end: 20110101
  2. SABRIL [Suspect]
     Indication: EPILEPSY
     Dosage: 1000 MG MILLIGRAM(S), 2 IN 1 D, ORAL 1500 MG MILLIGRAM(S), 3 IN 1 D, ORAL
     Route: 048
     Dates: start: 20110101

REACTIONS (3)
  - POSTICTAL PSYCHOSIS [None]
  - CONVULSION [None]
  - AMNESIA [None]
